FAERS Safety Report 24903258 (Version 1)
Quarter: 2025Q1

REPORT INFORMATION
  Report Type: Spontaneous
  Country: CA (occurrence: CA)
  Receive Date: 20250130
  Receipt Date: 20250130
  Transmission Date: 20250408
  Serious: Yes (Other)
  Sender: CSL BEHRING
  Company Number: CA-BEH-2025193237

PATIENT
  Age: 6 Decade
  Sex: Female

DRUGS (37)
  1. HUMAN IMMUNOGLOBULIN G [Suspect]
     Active Substance: HUMAN IMMUNOGLOBULIN G
     Indication: Complex regional pain syndrome
     Dosage: UNK, QD
     Route: 042
  2. HUMAN IMMUNOGLOBULIN G [Suspect]
     Active Substance: HUMAN IMMUNOGLOBULIN G
     Indication: Off label use
  3. PREDNISONE [Suspect]
     Active Substance: PREDNISONE
     Indication: Complex regional pain syndrome
     Route: 065
  4. AMITRIPTYLINE [Concomitant]
     Active Substance: AMITRIPTYLINE
     Indication: Complex regional pain syndrome
     Route: 065
  5. AMLODIPINE [Concomitant]
     Active Substance: AMLODIPINE BESYLATE
     Indication: Complex regional pain syndrome
     Route: 065
  6. ANAKINRA [Concomitant]
     Active Substance: ANAKINRA
     Indication: Complex regional pain syndrome
     Route: 065
  7. APREMILAST [Concomitant]
     Active Substance: APREMILAST
     Indication: Complex regional pain syndrome
     Route: 065
  8. BUMETANIDE [Concomitant]
     Active Substance: BUMETANIDE
     Indication: Complex regional pain syndrome
     Route: 065
  9. CALCITONIN [Concomitant]
     Active Substance: CALCITONIN
     Indication: Complex regional pain syndrome
     Route: 065
  10. CAPSAICIN [Concomitant]
     Active Substance: CAPSAICIN
     Indication: Complex regional pain syndrome
     Route: 061
  11. CIMETIDINE [Concomitant]
     Active Substance: CIMETIDINE
     Indication: Complex regional pain syndrome
     Route: 065
  12. CLONIDINE [Concomitant]
     Active Substance: CLONIDINE
     Indication: Complex regional pain syndrome
     Route: 065
  13. DILTIAZEM [Concomitant]
     Active Substance: DILTIAZEM
     Indication: Complex regional pain syndrome
     Route: 065
  14. ERELZI [Concomitant]
     Active Substance: ETANERCEPT-SZZS
     Indication: Complex regional pain syndrome
     Route: 065
  15. HYDROXYCHLOROQUINE [Concomitant]
     Active Substance: HYDROXYCHLOROQUINE
     Indication: Complex regional pain syndrome
     Route: 065
  16. IBUDILAST [Concomitant]
     Active Substance: IBUDILAST
     Indication: Complex regional pain syndrome
     Route: 065
  17. KETAMINE [Concomitant]
     Active Substance: KETAMINE
     Indication: Complex regional pain syndrome
     Route: 042
  18. KETAMINE [Concomitant]
     Active Substance: KETAMINE
     Route: 061
  19. KETAMINE [Concomitant]
     Active Substance: KETAMINE
     Route: 048
  20. LIDOCAINE [Concomitant]
     Active Substance: LIDOCAINE
     Indication: Complex regional pain syndrome
     Route: 042
  21. LIDOCAINE [Concomitant]
     Active Substance: LIDOCAINE
     Route: 061
  22. LITHIUM [Concomitant]
     Active Substance: LITHIUM
     Indication: Complex regional pain syndrome
     Route: 065
  23. MAGNESIUM [Concomitant]
     Active Substance: MAGNESIUM
     Indication: Complex regional pain syndrome
     Route: 065
  24. MEMANTINE [Concomitant]
     Active Substance: MEMANTINE
     Indication: Complex regional pain syndrome
     Route: 065
  25. METOPROLOL [Concomitant]
     Active Substance: METOPROLOL
     Indication: Complex regional pain syndrome
     Route: 065
  26. MEXILETINE [Concomitant]
     Active Substance: MEXILETINE
     Indication: Complex regional pain syndrome
     Route: 065
  27. MONTELUKAST [Concomitant]
     Active Substance: MONTELUKAST
     Indication: Complex regional pain syndrome
     Route: 065
  28. MYCOPHENOLATE MOFETIL [Concomitant]
     Active Substance: MYCOPHENOLATE MOFETIL
     Indication: Complex regional pain syndrome
     Route: 065
  29. ACETYLCYSTEINE [Concomitant]
     Active Substance: ACETYLCYSTEINE
     Indication: Complex regional pain syndrome
     Route: 065
  30. NALTREXONE [Concomitant]
     Active Substance: NALTREXONE
     Indication: Complex regional pain syndrome
     Route: 065
  31. PALMIDROL [Concomitant]
     Active Substance: PALMIDROL
     Indication: Complex regional pain syndrome
     Route: 065
  32. PENTOXIFYLLINE [Concomitant]
     Active Substance: PENTOXIFYLLINE
     Indication: Complex regional pain syndrome
     Route: 065
  33. PREGABALIN [Concomitant]
     Active Substance: PREGABALIN
     Indication: Complex regional pain syndrome
     Route: 065
  34. RIBOFLAVIN 5^-PHOSPHATE [Concomitant]
     Active Substance: RIBOFLAVIN 5^-PHOSPHATE
     Indication: Complex regional pain syndrome
     Route: 065
  35. SPIRONOLACTONE [Concomitant]
     Active Substance: SPIRONOLACTONE
     Indication: Complex regional pain syndrome
  36. SPIRONOLACTONE [Concomitant]
     Active Substance: SPIRONOLACTONE
     Indication: Complex regional pain syndrome
  37. VITAMIN C [Concomitant]
     Active Substance: ASCORBIC ACID
     Indication: Complex regional pain syndrome
     Route: 065

REACTIONS (22)
  - Anaemia [Recovered/Resolved]
  - Body tinea [Recovered/Resolved]
  - Bone density decreased [Recovered/Resolved]
  - Cataract [Recovered/Resolved]
  - Cellulitis [Recovered/Resolved]
  - Contusion [Recovered/Resolved]
  - Cushingoid [Recovered/Resolved]
  - Fatigue [Recovered/Resolved]
  - Glucose tolerance impaired [Recovered/Resolved]
  - Haemolysis [Recovered/Resolved]
  - Herpes zoster [Recovered/Resolved]
  - Hyperlipidaemia [Recovered/Resolved]
  - Hypertension [Recovered/Resolved]
  - Impaired quality of life [Recovered/Resolved]
  - Infection susceptibility increased [Recovered/Resolved]
  - Insomnia [Recovered/Resolved]
  - Oral herpes [Recovered/Resolved]
  - Poor quality sleep [Recovered/Resolved]
  - Purpura [Recovered/Resolved]
  - Skin disorder [Recovered/Resolved]
  - Weight increased [Recovered/Resolved]
  - Off label use [Unknown]
